FAERS Safety Report 8583889-4 (Version None)
Quarter: 2012Q3

REPORT INFORMATION
  Report Type: 
  Country: None (occurrence: None)
  Receive Date: 20120810
  Receipt Date: 20120802
  Transmission Date: 20120928
  Serious: Yes (Other)
  Sender: FDA-Public Use
  Company Number: US-009507513-1208USA001400

PATIENT

DRUGS (3)
  1. ALENDRONATE SODIUM [Suspect]
     Indication: OSTEOPENIA
  2. FOSAMAX [Suspect]
     Indication: OSTEOPENIA
     Dosage: UNK
     Route: 048
     Dates: start: 20030101
  3. RECLAST [Suspect]
     Indication: OSTEOPENIA
     Dosage: UNK
     Dates: start: 20090101

REACTIONS (1)
  - FEMUR FRACTURE [None]
